FAERS Safety Report 7217841-8 (Version None)
Quarter: 2011Q1

REPORT INFORMATION
  Report Type: 
  Country: None (occurrence: None)
  Receive Date: 20110110
  Receipt Date: 20110105
  Transmission Date: 20110831
  Serious: Yes (Other)
  Sender: FDA-Public Use
  Company Number: PHHY2011JP01063

PATIENT

DRUGS (2)
  1. SYMMETREL [Suspect]
     Route: 048
  2. COMTAN [Suspect]
     Route: 048

REACTIONS (2)
  - PLEURAL EFFUSION [None]
  - PLEURISY [None]
